FAERS Safety Report 17955394 (Version 1)
Quarter: 2020Q2

REPORT INFORMATION
  Report Type: Spontaneous
  Country: US (occurrence: US)
  Receive Date: 20200626
  Receipt Date: 20200626
  Transmission Date: 20200714
  Serious: Yes (Hospitalization)
  Sender: FDA-Public Use
  Company Number: None

PATIENT
  Age: 69 Year
  Sex: Female
  Weight: 54 kg

DRUGS (6)
  1. PROLIA [Suspect]
     Active Substance: DENOSUMAB
     Indication: OSTEOPOROSIS
  2. METOPROLOL. [Concomitant]
     Active Substance: METOPROLOL
  3. RIZATRIPTAN. [Concomitant]
     Active Substance: RIZATRIPTAN
  4. CLONAZEPAM. [Concomitant]
     Active Substance: CLONAZEPAM
  5. CASTRATES [Concomitant]
  6. ASPRPIN [Concomitant]

REACTIONS (3)
  - Pain in extremity [None]
  - Fall [None]
  - Femur fracture [None]

NARRATIVE: CASE EVENT DATE: 20200205
